FAERS Safety Report 6531411-6 (Version None)
Quarter: 2010Q1

REPORT INFORMATION
  Report Type: 
  Country: None (occurrence: None)
  Receive Date: 20100108
  Receipt Date: 20091104
  Transmission Date: 20100710
  Serious: No
  Sender: FDA-Public Use
  Company Number: A0816307A

PATIENT
  Sex: Female

DRUGS (3)
  1. TYKERB [Suspect]
     Route: 048
  2. XELODA [Concomitant]
  3. BONIVA [Concomitant]

REACTIONS (1)
  - MUCOSAL INFLAMMATION [None]
